FAERS Safety Report 14627960 (Version 3)
Quarter: 2018Q2

REPORT INFORMATION
  Report Type: Report from Study
  Country: US (occurrence: US)
  Receive Date: 20180312
  Receipt Date: 20180427
  Transmission Date: 20180711
  Serious: Yes (Death, Hospitalization)
  Sender: FDA-Public Use
  Company Number: US-ACTELION-A-NJ2018-168331

PATIENT
  Age: 59 Year
  Sex: Female
  Weight: 126.98 kg

DRUGS (4)
  1. OPSUMIT [Suspect]
     Active Substance: MACITENTAN
     Indication: PULMONARY ARTERIAL HYPERTENSION
     Dosage: 10 MG, QD
     Route: 048
     Dates: start: 20180130, end: 20180307
  2. DILTIAZEM. [Concomitant]
     Active Substance: DILTIAZEM
  3. VENTAVIS [Suspect]
     Active Substance: ILOPROST
     Indication: PULMONARY ARTERIAL HYPERTENSION
     Dosage: 5 MCG, 6-9 X PER DAY
     Route: 055
     Dates: end: 20180307
  4. ADCIRCA [Concomitant]
     Active Substance: TADALAFIL
     Route: 065

REACTIONS (8)
  - Pulmonary oedema [Unknown]
  - Respiratory arrest [Fatal]
  - Renal failure [Fatal]
  - Cardiac failure congestive [Unknown]
  - Fluid retention [Unknown]
  - Multiple organ dysfunction syndrome [Fatal]
  - Anaemia [Unknown]
  - Loss of consciousness [Unknown]

NARRATIVE: CASE EVENT DATE: 20100307
